FAERS Safety Report 9833227 (Version 3)
Quarter: 2014Q2

REPORT INFORMATION
  Report Type: Report from Study
  Country: BE (occurrence: BE)
  Receive Date: 20140121
  Receipt Date: 20140410
  Transmission Date: 20141212
  Serious: Yes (Hospitalization)
  Sender: FDA-Public Use
  Company Number: BE-ABBVIE-14P-013-1189720-00

PATIENT
  Age: 44 Year
  Sex: Female
  Weight: 53 kg

DRUGS (10)
  1. HUMIRA [Suspect]
     Indication: CROHN^S DISEASE
     Route: 058
     Dates: start: 20070816, end: 20130808
  2. VITAMIN B12 [Concomitant]
     Indication: VITAMIN SUPPLEMENTATION
     Dates: start: 200603
  3. TAMBOCOR [Concomitant]
     Indication: TACHYCARDIA
     Dates: start: 200706
  4. DAFALGAN [Concomitant]
     Indication: ABDOMINAL PAIN
     Dates: start: 200708
  5. DAFALGAN CODEINE [Concomitant]
     Indication: ABDOMINAL PAIN UPPER
     Dates: start: 200901, end: 200901
  6. ZANTAC [Concomitant]
     Indication: ABDOMINAL PAIN UPPER
     Dates: start: 200901, end: 201202
  7. ZOLPIDEM [Concomitant]
     Indication: INSOMNIA
     Dates: start: 2009
  8. ZOVIRAX [Concomitant]
     Indication: ORAL HERPES
     Dosage: APPLICATION
     Dates: start: 201008, end: 201011
  9. COSE-ANAL [Concomitant]
     Indication: HAEMORRHOIDS
     Dosage: APPLICATION
     Dates: start: 201203
  10. FERRIC CARBOXYMALTOSE [Concomitant]
     Indication: IRON DEFICIENCY ANAEMIA
     Dates: start: 20130724, end: 20130724

REACTIONS (1)
  - Intestinal obstruction [Recovered/Resolved]
